FAERS Safety Report 21587243 (Version 1)
Quarter: 2022Q4

REPORT INFORMATION
  Report Type: Spontaneous
  Country: CN (occurrence: CN)
  Receive Date: 20221114
  Receipt Date: 20221114
  Transmission Date: 20230113
  Serious: Yes (Other)
  Sender: FDA-Public Use
  Company Number: None

PATIENT
  Age: 56 Year
  Sex: Female
  Weight: 65 kg

DRUGS (4)
  1. CYCLOPHOSPHAMIDE [Suspect]
     Active Substance: CYCLOPHOSPHAMIDE
     Indication: Breast cancer female
     Dosage: 1 G, QD (DILUTED WITH 0.9% SODIUM CHLORIDE 50ML)
     Route: 041
     Dates: start: 20221007, end: 20221007
  2. SODIUM CHLORIDE [Suspect]
     Active Substance: SODIUM CHLORIDE
     Indication: Medication dilution
     Dosage: 50 ML, QD (USED TO DILUTE 1G OF CYCLOPHOSPHAMIDE)
     Route: 041
     Dates: start: 20221007, end: 20221007
  3. SODIUM CHLORIDE [Suspect]
     Active Substance: SODIUM CHLORIDE
     Dosage: 250 ML, QD (USED TO DILUTE 130 MG DOCETAXEL)
     Route: 041
     Dates: start: 20221007, end: 20221007
  4. DOCETAXEL [Suspect]
     Active Substance: DOCETAXEL
     Indication: Breast cancer female
     Dosage: 130 MG, QD (DILUTED WITH 0.9% SODIUM CHLORIDE 250ML)
     Route: 041
     Dates: start: 20221007, end: 20221007

REACTIONS (2)
  - White blood cell count decreased [Recovering/Resolving]
  - Asthenia [Recovering/Resolving]

NARRATIVE: CASE EVENT DATE: 20221015
